FAERS Safety Report 9580627 (Version 1)
Quarter: 2013Q4

REPORT INFORMATION
  Report Type: Spontaneous
  Country: US (occurrence: None)
  Receive Date: 20131001
  Receipt Date: 20131001
  Transmission Date: 20140711
  Serious: No
  Sender: FDA-Public Use
  Company Number: None

PATIENT
  Age: 48 Year
  Sex: Female

DRUGS (1)
  1. TECFIDERA [Suspect]
     Dosage: TECFIDEA STARTING, DAILY PO
     Route: 048
     Dates: start: 20130903, end: 20130930

REACTIONS (2)
  - Flushing [None]
  - Abdominal pain upper [None]
